FAERS Safety Report 13166069 (Version 4)
Quarter: 2017Q1

REPORT INFORMATION
  Report Type: Report from Study
  Country: MX (occurrence: MX)
  Receive Date: 20170131
  Receipt Date: 20170222
  Transmission Date: 20170428
  Serious: Yes (Hospitalization)
  Sender: FDA-Public Use
  Company Number: MX-UCBSA-2017003303

PATIENT
  Age: 3 Month
  Sex: Male
  Weight: 16 kg

DRUGS (6)
  1. KEPPRA [Suspect]
     Active Substance: LEVETIRACETAM
     Indication: SEIZURE
     Dosage: UNK
     Route: 042
  2. LEVETIRACETAM. [Suspect]
     Active Substance: LEVETIRACETAM
     Dosage: 2.5 ML, 2X/DAY (BID)
     Route: 048
     Dates: start: 20160728
  3. LEVOCARNITINE. [Concomitant]
     Active Substance: LEVOCARNITINE
     Indication: UNEVALUABLE EVENT
     Dosage: 3 ML, 2X/DAY (BID)
     Dates: start: 2014
  4. LEVETIRACETAM. [Suspect]
     Active Substance: LEVETIRACETAM
     Indication: SEIZURE
     Dosage: 1 ML, 2X/DAY (BID)
     Route: 048
     Dates: start: 201307
  5. LEVETIRACETAM. [Suspect]
     Active Substance: LEVETIRACETAM
     Dosage: 2.8 ML, 2X/DAY (BID)
     Route: 048
     Dates: start: 2016
  6. BACLOFEN. [Concomitant]
     Active Substance: BACLOFEN
     Indication: FEELING OF RELAXATION
     Dosage: 1 DF, ONCE DAILY (QD)
     Dates: start: 2014

REACTIONS (5)
  - Drug ineffective [Unknown]
  - Seizure [Recovering/Resolving]
  - Off label use [Unknown]
  - Unevaluable event [Recovering/Resolving]
  - Dyspnoea [Recovered/Resolved]

NARRATIVE: CASE EVENT DATE: 201307
